FAERS Safety Report 7857254-9 (Version None)
Quarter: 2011Q4

REPORT INFORMATION
  Report Type: 
  Country: None (occurrence: None)
  Receive Date: 20111027
  Receipt Date: 20111020
  Transmission Date: 20120403
  Serious: Yes (Other)
  Sender: FDA-Public Use
  Company Number: US-BIOGENIDEC-2011BI023963

PATIENT
  Age: 54 Year
  Sex: Female

DRUGS (4)
  1. AVONEX [Suspect]
     Route: 030
  2. CYCLOBENZAPRINE HCL [Concomitant]
     Indication: MUSCLE SPASMS
  3. AVONEX [Suspect]
     Indication: MULTIPLE SCLEROSIS
     Route: 030
     Dates: start: 20070510
  4. METALAXONE [Concomitant]
     Indication: MUSCLE SPASMS

REACTIONS (5)
  - FATIGUE [None]
  - ASTHENIA [None]
  - VOMITING [None]
  - ALOPECIA [None]
  - BREAST CANCER STAGE I [None]
